FAERS Safety Report 18210023 (Version 1)
Quarter: 2020Q3

REPORT INFORMATION
  Report Type: Spontaneous
  Country: GB (occurrence: GB)
  Receive Date: 20200829
  Receipt Date: 20200829
  Transmission Date: 20201103
  Serious: Yes (Death, Hospitalization, Other)
  Sender: FDA-Public Use
  Company Number: GB-AUROBINDO-AUR-APL-2010-01025

PATIENT
  Age: 44 Year
  Sex: Male

DRUGS (3)
  1. PROPOFOL. [Concomitant]
     Active Substance: PROPOFOL
     Indication: PRODUCT USED FOR UNKNOWN INDICATION
     Dosage: UNK UNK,UNK,UNKNOWN,UNKNOWN
     Route: 065
  2. LOSARTAN POTASSIUM FILM COATED TABLETS 25 MG [Suspect]
     Active Substance: LOSARTAN POTASSIUM
     Indication: PRODUCT USED FOR UNKNOWN INDICATION
     Dosage: UNK
     Route: 048
  3. ALFENTANIL. [Concomitant]
     Active Substance: ALFENTANIL
     Indication: PRODUCT USED FOR UNKNOWN INDICATION
     Dosage: UNK UNK,UNK,UNKNOWN,UNKNOWN
     Route: 065

REACTIONS (9)
  - Post-anoxic myoclonus [Recovered/Resolved]
  - Pulseless electrical activity [Recovering/Resolving]
  - Cardiac arrest [Recovering/Resolving]
  - Pneumonia [Fatal]
  - Myoclonus [Recovering/Resolving]
  - Obstructive airways disorder [Unknown]
  - Respiratory distress [Recovering/Resolving]
  - Angioedema [Recovering/Resolving]
  - Generalised tonic-clonic seizure [Recovered/Resolved]
